FAERS Safety Report 14185678 (Version 1)
Quarter: 2017Q4

REPORT INFORMATION
  Report Type: Report from Study
  Country: US (occurrence: US)
  Receive Date: 20171114
  Receipt Date: 20171114
  Transmission Date: 20180321
  Serious: Yes (Other)
  Sender: FDA-Public Use
  Company Number: US-BAYER-2017-212805

PATIENT
  Age: 78 Year
  Sex: Female

DRUGS (2)
  1. NEXAVAR [Suspect]
     Active Substance: SORAFENIB
     Indication: HEPATOCELLULAR CARCINOMA
     Dosage: 400 MG, QD
     Route: 048
     Dates: start: 20171026, end: 20171101
  2. NEXAVAR [Suspect]
     Active Substance: SORAFENIB
     Indication: HEPATOCELLULAR CARCINOMA
     Dosage: 400 MG, QOD
     Route: 048
     Dates: start: 20171102

REACTIONS (31)
  - Cough [Not Recovered/Not Resolved]
  - Erythema [Recovering/Resolving]
  - Pain [None]
  - Tinnitus [None]
  - Diarrhoea [Not Recovered/Not Resolved]
  - Faeces discoloured [None]
  - Dyspnoea [None]
  - Skin haemorrhage [Recovered/Resolved]
  - Constipation [None]
  - Dyschezia [None]
  - Fatigue [None]
  - Increased upper airway secretion [Recovering/Resolving]
  - Abdominal pain upper [None]
  - Gait inability [None]
  - Rash macular [None]
  - Off label use [None]
  - Feeding disorder [None]
  - Peripheral swelling [Recovering/Resolving]
  - Pharyngeal oedema [None]
  - Loss of personal independence in daily activities [None]
  - Skin exfoliation [Recovering/Resolving]
  - Arthralgia [None]
  - Joint swelling [Recovering/Resolving]
  - Skin haemorrhage [Recovering/Resolving]
  - Skin haemorrhage [None]
  - Skin discolouration [Recovering/Resolving]
  - Skin disorder [None]
  - Nausea [Not Recovered/Not Resolved]
  - Diarrhoea [Recovered/Resolved]
  - Abdominal distension [None]
  - Skin exfoliation [None]

NARRATIVE: CASE EVENT DATE: 2017
